FAERS Safety Report 17518971 (Version 2)
Quarter: 2020Q2

REPORT INFORMATION
  Report Type: Spontaneous
  Country: GB (occurrence: GB)
  Receive Date: 20200309
  Receipt Date: 20200408
  Transmission Date: 20200713
  Serious: Yes (Other)
  Sender: FDA-Public Use
  Company Number: GB-BAUSCH-BL-2020-006621

PATIENT
  Age: 35 Year
  Sex: Male
  Weight: 76.2 kg

DRUGS (1)
  1. TROPICAMIDE. [Suspect]
     Active Substance: TROPICAMIDE
     Indication: PRODUCT USED FOR UNKNOWN INDICATION
     Dosage: 1 DROP, QD (BOTH EYES)
     Route: 047
     Dates: start: 20200111, end: 20200111

REACTIONS (6)
  - Malaise [Recovered/Resolved]
  - Incoherent [Recovered/Resolved]
  - Seizure [Recovered/Resolved]
  - Dizziness [Recovered/Resolved]
  - Skin discolouration [Recovered/Resolved]
  - Cold sweat [Recovered/Resolved]

NARRATIVE: CASE EVENT DATE: 20200111
